FAERS Safety Report 5509979-8 (Version None)
Quarter: 2007Q4

REPORT INFORMATION
  Report Type: 
  Country: None (occurrence: None)
  Receive Date: 20071106
  Receipt Date: 20071022
  Transmission Date: 20080405
  Serious: Yes (Hospitalization)
  Sender: FDA-Public Use
  Company Number: S07-UKI-05776-01

PATIENT
  Age: 84 Year
  Sex: Female

DRUGS (1)
  1. CITALOPRAM HYDROBROMIDE [Suspect]
     Dosage: 20 MG QD PO
     Route: 048
     Dates: start: 20070101, end: 20071021

REACTIONS (2)
  - CHOREOATHETOSIS [None]
  - DYSKINESIA [None]
